FAERS Safety Report 5002718-9 (Version None)
Quarter: 2006Q2

REPORT INFORMATION
  Report Type: 
  Country: None (occurrence: None)
  Receive Date: 20060516
  Receipt Date: 20060505
  Transmission Date: 20061013
  Serious: Yes (Other)
  Sender: FDA-Public Use
  Company Number: US-JNJFOC-20060203826

PATIENT
  Sex: Female
  Weight: 83.92 kg

DRUGS (6)
  1. REMICADE [Suspect]
     Indication: CROHN'S DISEASE
     Route: 042
  2. SULFASALAZINE [Concomitant]
  3. PREDNISONE TAB [Concomitant]
  4. ZITHROMAX [Concomitant]
  5. ZOFRAN [Concomitant]
  6. PRE-NATALS [Concomitant]

REACTIONS (4)
  - DRUG EXPOSURE DURING PREGNANCY [None]
  - PREGNANCY INDUCED HYPERTENSION [None]
  - PREMATURE LABOUR [None]
  - VOMITING [None]
